FAERS Safety Report 10246043 (Version 1)
Quarter: 2013Q4

REPORT INFORMATION
  Report Type: Report from Study
  Country: CZ (occurrence: None)
  Receive Date: 20130531
  Receipt Date: 20130531
  Transmission Date: 20140711
  Serious: Yes (Hospitalization)
  Sender: FDA-Public Use
  Company Number: 2013-0685

PATIENT
  Age: 73 Year
  Sex: Female
  Weight: 63 kg

DRUGS (10)
  1. CARFILZOMIB (CARFILZOMIB) (20 MILLIGRAM(S)/SQ.METER, INJECTION FOR INFUSION) (CARFILZOMIB) [Suspect]
     Indication: PLASMA CELL MYELOMA
     Dosage: 9.4286 MG (33 MG, DAYS 1, 2)
     Route: 042
     Dates: start: 20110822, end: 20110823
  2. LENALIDOMIDE [Suspect]
     Indication: PLASMA CELL MYELOMA
     Dosage: 18.75 MG (33, 25  MG DAY 1-21, EVERY 28 DAYS)
     Route: 048
     Dates: start: 20110822, end: 20120122
  3. DEXAMETHASONE (DEXAMETHASONE) [Suspect]
     Indication: PLASMA CELL MYELOMA
     Dosage: 5.7143 MG (40 MG DAYS 1,8,15,22, EVERY DAYS)
     Dates: start: 20110822, end: 20120116
  4. ASPIRIN (ACETYLSALICYLIC ACID) [Concomitant]
  5. ENTIZOL (IMETRONIDAZOLE) [Concomitant]
  6. HERPESIN (ACICLOVIR) [Concomitant]
  7. KALIUM CHLORATUM 7.5% (POTASSIUM CHLORIDE) [Concomitant]
  8. LANSOPROL (LANSOPRAZOLE) [Concomitant]
  9. LODRONAT (CLODRONATE DISODIUM) [Concomitant]
  10. PANZYTRAT (PANCRATIN) [Concomitant]

REACTIONS (2)
  - Confusional state [None]
  - Memory impairment [None]
